FAERS Safety Report 8008582-8 (Version None)
Quarter: 2011Q4

REPORT INFORMATION
  Report Type: 
  Country: None (occurrence: None)
  Receive Date: 20111221
  Receipt Date: 20111208
  Transmission Date: 20120403
  Serious: Yes (Death, Life-Threatening, Disabling, Other)
  Sender: FDA-Public Use
  Company Number: AUR-APL-2010-01137

PATIENT
  Age: 68 Year
  Sex: Male

DRUGS (3)
  1. BLINDED THERAPY [Suspect]
     Indication: NON-SMALL CELL LUNG CANCER
     Dosage: INTRAMUSCULAR
     Route: 030
     Dates: start: 20091203, end: 20091203
  2. CITALOPRAM HYDROBROMIDE [Suspect]
     Indication: DEPRESSION
     Dosage: (20 MG),ORAL
     Route: 048
     Dates: start: 20090101
  3. DIAZEPAM [Suspect]
     Indication: ANXIETY
     Dates: start: 20090101

REACTIONS (3)
  - CARDIAC ARREST [None]
  - CARDIAC FAILURE CONGESTIVE [None]
  - TOXICITY TO VARIOUS AGENTS [None]
